FAERS Safety Report 12016200 (Version 1)
Quarter: 2016Q1

REPORT INFORMATION
  Report Type: Spontaneous
  Country: US (occurrence: US)
  Receive Date: 20160205
  Receipt Date: 20160205
  Transmission Date: 20160526
  Serious: No
  Sender: FDA-Public Use
  Company Number: US-AMGEN-USASP2015109070

PATIENT
  Age: 69 Year
  Sex: Male
  Weight: 70.2 kg

DRUGS (1)
  1. NEULASTA [Suspect]
     Active Substance: PEGFILGRASTIM
     Indication: PROPHYLAXIS
     Dosage: 6 MG, ONE TIME DOSE
     Route: 058
     Dates: start: 20151014, end: 20151019

REACTIONS (2)
  - Drug dose omission [Unknown]
  - Device failure [Unknown]

NARRATIVE: CASE EVENT DATE: 20151015
